FAERS Safety Report 10479980 (Version 1)
Quarter: 2014Q3

REPORT INFORMATION
  Report Type: Spontaneous
  Country: GB (occurrence: GB)
  Receive Date: 20140929
  Receipt Date: 20140929
  Transmission Date: 20150326
  Serious: Yes (Other)
  Sender: FDA-Public Use
  Company Number: GB-ORION CORPORATION ORION PHARMA-ENTC2014-0347

PATIENT
  Age: 66 Year
  Sex: Male

DRUGS (2)
  1. STALEVO [Suspect]
     Active Substance: CARBIDOPA\ENTACAPONE\LEVODOPA
     Indication: PARKINSON^S DISEASE
     Route: 065
  2. MADOPAR [Interacting]
     Active Substance: BENSERAZIDE HYDROCHLORIDE\LEVODOPA
     Route: 065

REACTIONS (6)
  - Fear [Unknown]
  - Weight decreased [Unknown]
  - Delusion [Unknown]
  - Drug interaction [Unknown]
  - Hallucination [Unknown]
  - Hyperhidrosis [Unknown]
